FAERS Safety Report 6295986-7 (Version None)
Quarter: 2009Q3

REPORT INFORMATION
  Report Type: 
  Country: None (occurrence: None)
  Receive Date: 20090804
  Receipt Date: 20090730
  Transmission Date: 20100115
  Serious: Yes (Hospitalization)
  Sender: FDA-Public Use
  Company Number: GB-PURDUE-GBR-2009-0005432

PATIENT
  Age: 73 Year
  Sex: Male

DRUGS (4)
  1. UNIPHYLLIN CONTINUS TABLETS 200 MG [Suspect]
     Indication: CHRONIC OBSTRUCTIVE PULMONARY DISEASE
     Dosage: 200 MG, DAILY
     Route: 048
     Dates: start: 20070101
  2. SERETIDE                           /01420901/ [Suspect]
     Indication: CHRONIC OBSTRUCTIVE PULMONARY DISEASE
     Dosage: 1 DF, BID
     Route: 055
     Dates: start: 20070101
  3. SPIRIVA [Suspect]
     Indication: CHRONIC OBSTRUCTIVE PULMONARY DISEASE
     Dosage: UNK
     Route: 055
     Dates: start: 20070101
  4. VENTOLIN [Suspect]
     Indication: CHRONIC OBSTRUCTIVE PULMONARY DISEASE
     Dosage: 100 MCG, UNK
     Route: 055
     Dates: start: 20070101

REACTIONS (6)
  - APHONIA [None]
  - DYSPHAGIA [None]
  - DYSPNOEA [None]
  - LOWER RESPIRATORY TRACT INFECTION [None]
  - OESOPHAGEAL CARCINOMA [None]
  - REGURGITATION [None]
